FAERS Safety Report 15366967 (Version 2)
Quarter: 2018Q3

REPORT INFORMATION
  Report Type: Spontaneous
  Country: BR (occurrence: BR)
  Receive Date: 20180910
  Receipt Date: 20180925
  Transmission Date: 20181010
  Serious: Yes (Other)
  Sender: FDA-Public Use
  Company Number: BR-PFIZER INC-2018355911

PATIENT
  Age: 60 Year
  Sex: Female

DRUGS (1)
  1. LORAX [Suspect]
     Active Substance: LORAZEPAM
     Indication: INSOMNIA
     Dosage: 2 TABLETS (4 MG) AT NIGHTFALL
     Dates: start: 2011

REACTIONS (1)
  - Breast cancer female [Unknown]

NARRATIVE: CASE EVENT DATE: 2014
